FAERS Safety Report 5600976-0 (Version None)
Quarter: 2008Q1

REPORT INFORMATION
  Report Type: 
  Country: None (occurrence: None)
  Receive Date: 20080118
  Receipt Date: 20080111
  Transmission Date: 20080703
  Serious: Yes (Death, Other)
  Sender: FDA-Public Use
  Company Number: 217-20785-08010731

PATIENT

DRUGS (8)
  1. THALOMID [Suspect]
     Indication: MULTIPLE MYELOMA
     Dosage: SEE IMAGE, ORAL
     Route: 048
  2. DEXAMETHASONE TAB [Suspect]
     Indication: MULTIPLE MYELOMA
     Dosage: SEE IMAGE, ORAL
     Route: 048
  3. CYCLOPHOSPHAMIDE [Suspect]
     Dosage: 800 MG, DAY 1 OF 21 DAY CYCLE, INTRAVENOUS, 50 MG, DAILY IN 28 DAY CYCLE
     Route: 042
  4. LOW-MOLECULAR HEPARIN (HEPARIN) [Concomitant]
  5. ENOXAPARIN SODIUM [Concomitant]
  6. FRAXIPARIN (HEPARIN-FRACTION, CALCIUM SALT) [Concomitant]
  7. OMEPRAZOLE [Concomitant]
  8. POTASSIUM (POTASSIUM) [Concomitant]

REACTIONS (10)
  - BRONCHOPNEUMONIA [None]
  - DEEP VEIN THROMBOSIS [None]
  - DIABETIC HYPERGLYCAEMIC COMA [None]
  - ILL-DEFINED DISORDER [None]
  - MULTIPLE MYELOMA [None]
  - NEUROPATHY PERIPHERAL [None]
  - PULMONARY EMBOLISM [None]
  - RENAL FAILURE [None]
  - SALMONELLA SEPSIS [None]
  - URINARY TRACT INFECTION [None]
